FAERS Safety Report 5305960-2 (Version None)
Quarter: 2007Q2

REPORT INFORMATION
  Report Type: 
  Country: None (occurrence: None)
  Receive Date: 20070424
  Receipt Date: 20070417
  Transmission Date: 20071010
  Serious: Yes (Hospitalization, Other)
  Sender: FDA-Public Use
  Company Number: US-MERCK-0608USA01324

PATIENT
  Age: 59 Year
  Sex: Female

DRUGS (15)
  1. FOSAMAX [Suspect]
     Indication: PROPHYLAXIS
     Route: 048
  2. FOSAMAX [Suspect]
     Route: 048
     Dates: end: 20040101
  3. CORTICOSTEROIDS (UNSPECIFIED) [Concomitant]
     Route: 065
     Dates: start: 20000101
  4. CALCIUM (UNSPECIFIED) [Concomitant]
     Route: 065
  5. CELEBREX [Concomitant]
     Indication: RHEUMATOID ARTHRITIS
     Route: 065
  6. DIOVAN [Concomitant]
     Route: 065
  7. FOLIC ACID [Concomitant]
     Indication: RHEUMATOID ARTHRITIS
     Route: 065
  8. HUMIRA [Concomitant]
     Route: 065
  9. MIRAPEX [Concomitant]
     Indication: RESTLESS LEGS SYNDROME
     Route: 065
  10. METHOTREXATE [Concomitant]
     Route: 065
  11. VITAMINS (UNSPECIFIED) [Concomitant]
     Route: 065
  12. PLAVIX [Concomitant]
     Route: 065
  13. PREDNISONE [Concomitant]
     Indication: RHEUMATOID ARTHRITIS
     Route: 065
  14. TRAZODONE HYDROCHLORIDE [Concomitant]
     Indication: RESTLESS LEGS SYNDROME
     Route: 065
  15. ZOLOFT [Concomitant]
     Route: 065

REACTIONS (10)
  - ANGIOPATHY [None]
  - ANXIETY [None]
  - ARTHROPATHY [None]
  - DEAFNESS [None]
  - DEPRESSION [None]
  - JAW FRACTURE [None]
  - OSTEOMYELITIS [None]
  - OSTEONECROSIS [None]
  - PNEUMONIA [None]
  - URINARY TRACT INFECTION [None]
